FAERS Safety Report 4350151-5 (Version None)
Quarter: 2004Q2

REPORT INFORMATION
  Report Type: 
  Country: None (occurrence: None)
  Receive Date: 20040429
  Receipt Date: 20040427
  Transmission Date: 20050107
  Serious: Yes (Life-Threatening)
  Sender: FDA-Public Use
  Company Number: US-BRISTOL-MYERS SQUIBB COMPANY-12572343

PATIENT
  Age: 45 Year
  Sex: Male
  Weight: 67 kg

DRUGS (4)
  1. EFAVIRENZ [Suspect]
     Route: 048
     Dates: start: 20030805
  2. TRIZIVIR [Suspect]
     Route: 048
     Dates: start: 20020124
  3. PERCOCET [Concomitant]
     Dates: start: 20020628
  4. NORTRIPTYLINE HCL [Concomitant]
     Dates: start: 20020809

REACTIONS (1)
  - HYPERLIPIDAEMIA [None]
